FAERS Safety Report 20457592 (Version 1)
Quarter: 2022Q1

REPORT INFORMATION
  Report Type: Spontaneous
  Country: FR (occurrence: FR)
  Receive Date: 20220210
  Receipt Date: 20220210
  Transmission Date: 20220423
  Serious: Yes (Hospitalization, Other)
  Sender: FDA-Public Use
  Company Number: FR-NOVARTISPH-NVSC2022FR025388

PATIENT
  Age: 3 Year
  Sex: Male
  Weight: 17 kg

DRUGS (2)
  1. CYCLOSPORINE [Suspect]
     Active Substance: CYCLOSPORINE
     Indication: Immunosuppression
     Route: 065
  2. DEFITELIO [Suspect]
     Active Substance: DEFIBROTIDE SODIUM
     Indication: Venoocclusive disease
     Dosage: 24 MG/KG, QD
     Route: 042
     Dates: start: 20181004, end: 20181024

REACTIONS (14)
  - Vitreous haemorrhage [Recovering/Resolving]
  - Hepatorenal syndrome [Unknown]
  - Respiratory failure [Recovering/Resolving]
  - Graft versus host disease [Unknown]
  - Hallucination [Unknown]
  - Thrombocytopenia [Unknown]
  - Restlessness [Unknown]
  - Hyperaesthesia [Unknown]
  - Pleural effusion [Unknown]
  - Anaemia [Unknown]
  - Aplasia [Recovering/Resolving]
  - Insomnia [Unknown]
  - Overdose [Unknown]
  - Off label use [Unknown]

NARRATIVE: CASE EVENT DATE: 20181016
